FAERS Safety Report 11069781 (Version 2)
Quarter: 2015Q2

REPORT INFORMATION
  Report Type: Spontaneous
  Country: AT (occurrence: AT)
  Receive Date: 20150427
  Receipt Date: 20150430
  Transmission Date: 20150821
  Serious: Yes (Death, Other)
  Sender: FDA-Public Use
  Company Number: AT-GILEAD-2015-0150526

PATIENT
  Age: 58 Year
  Sex: Male
  Weight: 119.5 kg

DRUGS (24)
  1. VENDAL                             /00036302/ [Concomitant]
     Indication: DRUG WITHDRAWAL MAINTENANCE THERAPY
     Dosage: 1200 MG, BID
     Route: 065
     Dates: start: 20140521
  2. TRUXAL                             /00012102/ [Concomitant]
     Active Substance: CHLORPROTHIXENE
     Indication: DEPRESSION
     Dosage: 30 MG, QD
     Route: 065
     Dates: start: 20141023
  3. LACTULOSE. [Concomitant]
     Active Substance: LACTULOSE
     Indication: CONSTIPATION
     Dosage: 30 ML, TID
     Route: 065
     Dates: start: 20141216
  4. EUTHYROX [Concomitant]
     Active Substance: LEVOTHYROXINE SODIUM
     Indication: HYPOTHYROIDISM
     Dosage: 25 UG, QD
     Route: 065
     Dates: start: 20140515
  5. ANTIFLAT [Concomitant]
     Indication: ABDOMINAL DISTENSION
     Dosage: UNK, TID
     Route: 065
     Dates: start: 20141216
  6. ISENTRESS [Concomitant]
     Active Substance: RALTEGRAVIR POTASSIUM
     Indication: SECONDARY IMMUNODEFICIENCY
     Dosage: 400 MG, BID
     Route: 065
     Dates: start: 20100325
  7. IBANDRONIC ACID [Concomitant]
     Active Substance: IBANDRONIC ACID
     Indication: OSTEOPOROSIS
     Dosage: 3 MG, UNK
     Route: 042
     Dates: start: 20140212
  8. ALLOPURINOL. [Concomitant]
     Active Substance: ALLOPURINOL
     Indication: GOUT
     Dosage: 100 MG, QD
     Route: 065
     Dates: start: 20140520
  9. COTRIMOXAZOL [Concomitant]
     Active Substance: SULFAMETHOXAZOLE\TRIMETHOPRIM
     Indication: ANTIFUNGAL PROPHYLAXIS
     Dosage: 1.5 DF, UNK
     Route: 065
     Dates: start: 20130128
  10. ZYRTEC [Concomitant]
     Active Substance: CETIRIZINE HYDROCHLORIDE
     Indication: PRURITUS
     Dosage: 10 MG, QD
     Route: 065
     Dates: start: 20141215
  11. NOVALGIN [Concomitant]
     Active Substance: METAMIZOLE SODIUM
     Indication: ANALGESIC THERAPY
     Dosage: 1000 MG, TID
     Route: 065
     Dates: start: 20141217
  12. OLEOVIT D3 TROPFEN [Concomitant]
     Indication: VITAMIN D DEFICIENCY
     Dosage: 7.5 ML, UNK
     Route: 065
     Dates: start: 20081222
  13. ZIAGEN [Concomitant]
     Active Substance: ABACAVIR SULFATE
     Indication: SECONDARY IMMUNODEFICIENCY
     Dosage: 300 MG, BID
     Route: 065
     Dates: start: 20120217
  14. HEPAMERZ                           /01390201/ [Concomitant]
     Indication: HEPATIC ENCEPHALOPATHY
     Dosage: UNK, TID
     Route: 065
     Dates: start: 20140415
  15. PASPERTIN                          /00041902/ [Concomitant]
     Active Substance: METOCLOPRAMIDE HYDROCHLORIDE
     Indication: NAUSEA
     Dosage: 10 MG, TID
     Route: 065
     Dates: start: 20140818
  16. DILATREND [Concomitant]
     Active Substance: CARVEDILOL
     Indication: VARICES OESOPHAGEAL
     Dosage: 25 MG, QD
     Route: 065
     Dates: start: 20141216
  17. COLIDIMIN [Concomitant]
     Active Substance: RIFAXIMIN
     Indication: HEPATIC ENCEPHALOPATHY
     Dosage: 200 MG, TID
     Route: 065
     Dates: start: 20141217
  18. HARVONI [Suspect]
     Active Substance: LEDIPASVIR\SOFOSBUVIR
     Indication: CHRONIC HEPATITIS C
     Dosage: 1 DF, QD
     Route: 065
     Dates: start: 20150203
  19. PANTOPRAZOLE SODIUM. [Concomitant]
     Active Substance: PANTOPRAZOLE SODIUM
     Indication: GASTRITIS
     Dosage: 40 MG, QD
     Route: 065
     Dates: start: 20120114
  20. MIRTABENE [Concomitant]
     Active Substance: MIRTAZAPINE
     Indication: DEPRESSION
     Dosage: 30 MG, QD
     Route: 065
     Dates: start: 20141009
  21. PRAXITEN [Concomitant]
     Active Substance: OXAZEPAM
     Indication: DRUG DEPENDENCE
     Dosage: 25 MG, TID
     Route: 065
     Dates: start: 20141113
  22. KYTRIL [Concomitant]
     Active Substance: GRANISETRON HYDROCHLORIDE
     Indication: NAUSEA
     Dosage: 2 MG, QD
     Route: 065
     Dates: start: 20130708
  23. EPIVIR [Concomitant]
     Active Substance: LAMIVUDINE
     Indication: SECONDARY IMMUNODEFICIENCY
     Dosage: 150 MG, QD
     Dates: start: 20140818
  24. LASILACTON [Concomitant]
     Active Substance: FUROSEMIDE\SPIRONOLACTONE
     Indication: ASCITES
     Dosage: 1 MG, BID
     Route: 065
     Dates: start: 20150128

REACTIONS (1)
  - Sudden cardiac death [Fatal]

NARRATIVE: CASE EVENT DATE: 20150303
